FAERS Safety Report 7959854-4 (Version None)
Quarter: 2011Q4

REPORT INFORMATION
  Report Type: 
  Country: None (occurrence: None)
  Receive Date: 20111206
  Receipt Date: 20111202
  Transmission Date: 20120403
  Serious: Yes (Other)
  Sender: FDA-Public Use
  Company Number: US-B.I. PHARMACEUTICALS,INC./RIDGEFIELD-2011-BP-27457PF

PATIENT
  Sex: Male

DRUGS (4)
  1. ADVAIR DISKUS 100/50 [Concomitant]
  2. LIPITOR [Suspect]
     Route: 048
  3. SYMBICORT [Concomitant]
  4. SPIRIVA [Suspect]

REACTIONS (1)
  - PNEUMONIA [None]
